FAERS Safety Report 5951716-7 (Version None)
Quarter: 2008Q4

REPORT INFORMATION
  Report Type: 
  Country: None (occurrence: None)
  Receive Date: 20081113
  Receipt Date: 20081104
  Transmission Date: 20090506
  Serious: Yes (Life-Threatening)
  Sender: FDA-Public Use
  Company Number: JP-NOVOPROD-279589

PATIENT
  Age: 65 Year
  Sex: Male
  Weight: 59 kg

DRUGS (5)
  1. PENFILL 50R CHU [Suspect]
     Indication: TYPE 2 DIABETES MELLITUS
     Dosage: UNKNOWN
     Route: 058
     Dates: start: 20050901, end: 20080906
  2. PENFILL R CHU [Suspect]
     Indication: TYPE 2 DIABETES MELLITUS
     Dosage: UNKNOWN
     Route: 058
     Dates: start: 20050901, end: 20080906
  3. INSULIN [Concomitant]
     Dosage: UNKNOWN
  4. SINLESTAL [Concomitant]
     Dosage: 750 MG, QD
     Route: 048
     Dates: start: 20031001
  5. PENFILL 30R CHU [Concomitant]
     Indication: TYPE 2 DIABETES MELLITUS

REACTIONS (3)
  - HYPOGLYCAEMIC COMA [None]
  - INTENTIONAL OVERDOSE [None]
  - SUICIDE ATTEMPT [None]
